FAERS Safety Report 16885504 (Version 1)
Quarter: 2019Q4

REPORT INFORMATION
  Report Type: Spontaneous
  Country: US (occurrence: US)
  Receive Date: 20190809
  Receipt Date: 20190809
  Transmission Date: 20200122
  Serious: Yes (Hospitalization)
  Sender: FDA-Public Use
  Company Number: None

PATIENT
  Age: 57 Year
  Sex: Female

DRUGS (5)
  1. GLUCOS/CHOND [Concomitant]
  2. ACTEMRA [Suspect]
     Active Substance: TOCILIZUMAB
     Route: 058
     Dates: start: 20180525
  3. A THRU Z TAB [Concomitant]
  4. LORATADINE. [Concomitant]
     Active Substance: LORATADINE
  5. AMPHENT/DEXTR [Concomitant]

REACTIONS (3)
  - Arthralgia [None]
  - Musculoskeletal pain [None]
  - Chest pain [None]

NARRATIVE: CASE EVENT DATE: 20190717
